FAERS Safety Report 19736652 (Version 2)
Quarter: 2021Q3

REPORT INFORMATION
  Report Type: Spontaneous
  Country: US (occurrence: US)
  Receive Date: 20210823
  Receipt Date: 20210827
  Transmission Date: 20211014
  Serious: No
  Sender: FDA-Public Use
  Company Number: NVSC2021US186090

PATIENT
  Sex: Male

DRUGS (1)
  1. ILARIS [Suspect]
     Active Substance: CANAKINUMAB
     Indication: PRODUCT USED FOR UNKNOWN INDICATION
     Dosage: BENEATH THE SKIN,USUALLY VIA INJECTION
     Route: 058
     Dates: start: 2021

REACTIONS (2)
  - Pyrexia [Recovering/Resolving]
  - Product distribution issue [Recovering/Resolving]

NARRATIVE: CASE EVENT DATE: 20210811
